FAERS Safety Report 6060455-6 (Version None)
Quarter: 2009Q1

REPORT INFORMATION
  Report Type: 
  Country: None (occurrence: None)
  Receive Date: 20090129
  Receipt Date: 20090128
  Transmission Date: 20090719
  Serious: Yes (Other)
  Sender: FDA-Public Use
  Company Number: AE-109-024

PATIENT
  Age: 86 Year
  Sex: Female

DRUGS (2)
  1. LIDODERM [Suspect]
     Indication: INTERVERTEBRAL DISC DEGENERATION
     Dosage: OCCASIONALLY/3-4 YEARS
     Route: 062
  2. LIDODERM [Suspect]
     Indication: POST HERPETIC NEURALGIA
     Dosage: OCCASIONALLY/3-4 YEARS
     Route: 062

REACTIONS (1)
  - RENAL NEOPLASM [None]
